FAERS Safety Report 17515534 (Version 2)
Quarter: 2020Q1

REPORT INFORMATION
  Report Type: Report from Study
  Country: FR (occurrence: FR)
  Receive Date: 20200309
  Receipt Date: 20200316
  Transmission Date: 20200409
  Serious: Yes (Hospitalization)
  Sender: FDA-Public Use
  Company Number: FR-ROCHE-2558283

PATIENT
  Age: 74 Year
  Sex: Female

DRUGS (2)
  1. TRASTUZUMAB. [Suspect]
     Active Substance: TRASTUZUMAB
     Indication: GASTRIC CANCER
     Dosage: DATE OF LAST ADMINISTRATION PRIOR TO SAE WAS ON 24/DEC/2019
     Route: 042
     Dates: start: 20191112
  2. PERTUZUMAB. [Suspect]
     Active Substance: PERTUZUMAB
     Indication: GASTRIC CANCER
     Dosage: DATE OF LAST ADMINISTRATION PRIOR TO SAE WAS ON 24/DEC/2019
     Route: 042
     Dates: start: 20191112

REACTIONS (1)
  - Pneumothorax [Recovering/Resolving]

NARRATIVE: CASE EVENT DATE: 20200224
